FAERS Safety Report 8924818 (Version 1)
Quarter: 2012Q4

REPORT INFORMATION
  Report Type: 
  Country: US (occurrence: US)
  Receive Date: 20121126
  Receipt Date: 20121126
  Transmission Date: 20130627
  Serious: Yes (Hospitalization)
  Sender: FDA-Public Use
  Company Number: US-VERTEX PHARMACEUTICAL INC.-2012-024885

PATIENT
  Sex: Female
  Weight: 108 kg

DRUGS (11)
  1. VX-950 (TELAPREVIR) [Suspect]
     Indication: HEPATITIS C
     Dosage: 750 mg, tid
     Route: 048
     Dates: start: 2012, end: 20120424
  2. VX-950 (TELAPREVIR) [Suspect]
     Dosage: 750 mg, tid
     Route: 048
  3. RIBASPHERE [Concomitant]
     Indication: HEPATITIS C
     Dosage: 600 mg, bid
     Dates: start: 2012, end: 20120424
  4. RIBASPHERE [Concomitant]
     Dosage: 600 mg, bid
  5. PEGINTRON                          /01543001/ [Concomitant]
     Indication: HEPATITIS C
     Dosage: 150 ?g, UNK
     Route: 058
     Dates: start: 2012, end: 20120424
  6. PEGINTRON                          /01543001/ [Concomitant]
     Dosage: 150 ?g, UNK
     Route: 058
  7. METOPROLOL TARTRATE [Concomitant]
     Dosage: UNK, qd
  8. LISINOPRIL HCTZ [Concomitant]
     Dosage: UNK, qd
  9. LEVOTHYROXINE [Concomitant]
     Dosage: UNK, qd
  10. ALBUTEROL                          /00139501/ [Concomitant]
     Dosage: UNK, prn
  11. CVS FISH OIL CONCENTRATE CP [Concomitant]
     Dosage: UNK, qd

REACTIONS (6)
  - Hypotension [Unknown]
  - Dyspnoea [Unknown]
  - Chest pain [Unknown]
  - Back pain [Unknown]
  - Mood altered [Unknown]
  - Fatigue [Unknown]
